FAERS Safety Report 9822829 (Version 1)
Quarter: 2014Q1

REPORT INFORMATION
  Report Type: Spontaneous
  Country: TR (occurrence: TR)
  Receive Date: 20140116
  Receipt Date: 20140116
  Transmission Date: 20141002
  Serious: Yes (Hospitalization)
  Sender: FDA-Public Use
  Company Number: PHHY2014TR001720

PATIENT
  Age: 74 Year
  Sex: Female

DRUGS (3)
  1. METHOTREXATE [Suspect]
     Indication: RHEUMATOID ARTHRITIS
     Dosage: 10 MG, PER WEEK
  2. TEMISARTAN [Concomitant]
     Indication: HYPERTENSION
     Dosage: 80 MG, PER DAY
  3. LEVOTHYROXINE [Concomitant]
     Indication: AUTOIMMUNE THYROIDITIS
     Dosage: 100 MG, PER DAY

REACTIONS (19)
  - Hypercalcaemia [Unknown]
  - Pancytopenia [Recovering/Resolving]
  - Muscular weakness [Recovering/Resolving]
  - Fatigue [Recovering/Resolving]
  - Back pain [Recovering/Resolving]
  - Pyrexia [Recovering/Resolving]
  - Bone pain [Recovering/Resolving]
  - Psoas abscess [Recovering/Resolving]
  - Bone tuberculosis [Recovering/Resolving]
  - Spinal column stenosis [Recovering/Resolving]
  - Renal failure [Unknown]
  - Oral mucosa erosion [Recovered/Resolved]
  - Lip haemorrhage [Recovered/Resolved]
  - Genital ulceration [Recovered/Resolved]
  - Skin ulcer [Recovered/Resolved]
  - Hyporeflexia [Recovering/Resolving]
  - C-reactive protein increased [Recovering/Resolving]
  - Transaminases increased [Recovering/Resolving]
  - Skin reaction [Recovered/Resolved]
